FAERS Safety Report 23431911 (Version 1)
Quarter: 2024Q1

REPORT INFORMATION
  Report Type: Report from Study
  Country: US (occurrence: US)
  Receive Date: 20240123
  Receipt Date: 20240123
  Transmission Date: 20240410
  Serious: Yes (Other)
  Sender: FDA-Public Use
  Company Number: US-PUMA BIOTECHNOLOGY, LTD.-2023-PUM-US001426

PATIENT

DRUGS (2)
  1. NERLYNX [Suspect]
     Active Substance: NERATINIB
     Indication: Product used for unknown indication
     Dosage: 2 TABLETS (80 MG), DAILY
     Route: 048
     Dates: start: 20230807, end: 2023
  2. NERLYNX [Suspect]
     Active Substance: NERATINIB
     Dosage: 1 TABLET (40 MG), DAILY
     Route: 048
     Dates: start: 2023

REACTIONS (8)
  - Cardiac disorder [Unknown]
  - Soft tissue mass [Not Recovered/Not Resolved]
  - Skin disorder [Unknown]
  - Rash pruritic [Not Recovered/Not Resolved]
  - Diarrhoea [Unknown]
  - Nausea [Unknown]
  - Decreased appetite [Not Recovered/Not Resolved]
  - Underdose [Unknown]

NARRATIVE: CASE EVENT DATE: 20230807
